FAERS Safety Report 6567323-1 (Version None)
Quarter: 2010Q1

REPORT INFORMATION
  Report Type: 
  Country: None (occurrence: None)
  Receive Date: 20100202
  Receipt Date: 20100121
  Transmission Date: 20100710
  Serious: Yes (Hospitalization)
  Sender: FDA-Public Use
  Company Number: PHHY2009GB60220

PATIENT
  Sex: Male

DRUGS (3)
  1. CLOZARIL [Suspect]
     Indication: SCHIZOPHRENIA
     Dosage: UNK
     Route: 048
     Dates: start: 20030520
  2. CLOZARIL [Suspect]
     Dosage: 450 MG/DAY
     Dates: end: 20091231
  3. EPILIM CHRONO [Concomitant]
     Indication: DROP ATTACKS
     Dosage: 200 MG, BID

REACTIONS (5)
  - LOWER RESPIRATORY TRACT INFECTION [None]
  - MALAISE [None]
  - NAUSEA [None]
  - SURGERY [None]
  - VOMITING [None]
